FAERS Safety Report 10539595 (Version 2)
Quarter: 2014Q4

REPORT INFORMATION
  Report Type: Spontaneous
  Country: US (occurrence: US)
  Receive Date: 20141023
  Receipt Date: 20141023
  Transmission Date: 20150529
  Serious: No
  Sender: FDA-Public Use
  Company Number: US-ALLERGAN-1402077US

PATIENT
  Age: 61 Year
  Sex: Female

DRUGS (3)
  1. METFORMIN [Suspect]
     Active Substance: METFORMIN HYDROCHLORIDE
     Indication: TYPE 2 DIABETES MELLITUS
     Dosage: UNK
     Route: 048
  2. COMBIGAN[R] [Suspect]
     Active Substance: BRIMONIDINE TARTRATE\TIMOLOL MALEATE
     Dosage: 2 GTT, UNK
     Route: 047
     Dates: start: 201208, end: 201311
  3. COMBIGAN[R] [Suspect]
     Active Substance: BRIMONIDINE TARTRATE\TIMOLOL MALEATE
     Indication: INTRAOCULAR PRESSURE INCREASED
     Dosage: 2 GTT, BID
     Route: 047
     Dates: start: 201208, end: 201311

REACTIONS (24)
  - Hyperhidrosis [Unknown]
  - Hordeolum [Unknown]
  - Muscular weakness [Unknown]
  - Dry mouth [Unknown]
  - Eye disorder [Unknown]
  - Laceration [Unknown]
  - Dysstasia [Unknown]
  - Inappropriate schedule of drug administration [Unknown]
  - Ocular hyperaemia [Unknown]
  - Dry eye [Unknown]
  - Conjunctivitis [Unknown]
  - Erythema [Unknown]
  - Blister [Unknown]
  - Eye pruritus [Unknown]
  - Insomnia [Unknown]
  - Influenza like illness [Unknown]
  - Rhinitis [Unknown]
  - Eyelid oedema [Unknown]
  - Joint injury [Unknown]
  - Pyrexia [Unknown]
  - Muscle atrophy [Unknown]
  - Fall [Unknown]
  - Dyspnoea [Unknown]
  - Arrhythmia [Unknown]
